FAERS Safety Report 25045004 (Version 1)
Quarter: 2025Q1

REPORT INFORMATION
  Report Type: Spontaneous
  Country: FR (occurrence: FR)
  Receive Date: 20250306
  Receipt Date: 20250306
  Transmission Date: 20250408
  Serious: Yes (Hospitalization)
  Sender: RANBAXY
  Company Number: FR-AFSSAPS-AN2025000044

PATIENT
  Age: 73 Year
  Sex: Female

DRUGS (9)
  1. OLANZAPINE [Suspect]
     Active Substance: OLANZAPINE
     Indication: Bipolar disorder
     Dosage: 20 MILLIGRAM, DAILY
     Route: 048
     Dates: end: 20241219
  2. TERALITHE [Suspect]
     Active Substance: LITHIUM CARBONATE
     Indication: Bipolar disorder
     Dosage: 2 DOSAGE FORM, DAILY
     Route: 048
     Dates: start: 20240620, end: 20241210
  3. TIAPRIDE [Suspect]
     Active Substance: TIAPRIDE
     Indication: Bipolar disorder
     Dosage: 50 MILLIGRAM, DAILY
     Route: 048
     Dates: end: 20241219
  4. TROPATEPINE HYDROCHLORIDE [Concomitant]
     Active Substance: TROPATEPINE HYDROCHLORIDE
     Indication: Product used for unknown indication
     Dosage: 1 DOSAGE FORM, DAILY
     Route: 048
     Dates: end: 20241219
  5. ALFUZOSIN HYDROCHLORIDE [Concomitant]
     Active Substance: ALFUZOSIN HYDROCHLORIDE
     Indication: Product used for unknown indication
     Dosage: 10 MILLIGRAM, DAILY
     Route: 048
     Dates: start: 20241010, end: 20241214
  6. OXYCODONE [Concomitant]
     Active Substance: OXYCODONE
     Indication: Product used for unknown indication
     Route: 048
     Dates: start: 20241010, end: 20241215
  7. OXYCODONE [Concomitant]
     Active Substance: OXYCODONE
     Route: 048
     Dates: start: 20241010, end: 20241219
  8. ACETAMINOPHEN [Concomitant]
     Active Substance: ACETAMINOPHEN
     Indication: Product used for unknown indication
     Route: 048
     Dates: start: 20241010, end: 20241215
  9. POLYETHYLENE GLYCOLS [Concomitant]
     Active Substance: POLYETHYLENE GLYCOLS
     Indication: Product used for unknown indication
     Dosage: 20 MILLIGRAM, DAILY
     Route: 048
     Dates: start: 20241010, end: 20241219

REACTIONS (3)
  - Extrapyramidal disorder [Recovering/Resolving]
  - Somnolence [Recovering/Resolving]
  - Antipsychotic drug level above therapeutic [Recovered/Resolved]

NARRATIVE: CASE EVENT DATE: 20241210
